FAERS Safety Report 16331001 (Version 1)
Quarter: 2019Q2

REPORT INFORMATION
  Report Type: Spontaneous
  Country: US (occurrence: US)
  Receive Date: 20190517
  Receipt Date: 20190517
  Transmission Date: 20190711
  Serious: No
  Sender: FDA-Public Use
  Company Number: None

PATIENT
  Age: 52 Year
  Sex: Female
  Weight: 72 kg

DRUGS (14)
  1. GABAPENTIN. [Concomitant]
     Active Substance: GABAPENTIN
  2. NARATRIPTIN [Concomitant]
  3. ALBUTEROL. [Concomitant]
     Active Substance: ALBUTEROL
  4. PROBIOTIC [Concomitant]
     Active Substance: PROBIOTICS NOS
  5. BUPROPION. [Concomitant]
     Active Substance: BUPROPION
  6. PAIN CREAMS [Concomitant]
  7. AIMOVIG [Suspect]
     Active Substance: ERENUMAB-AOOE
     Indication: MIGRAINE
     Dosage: ?          QUANTITY:1 INJECTION(S);OTHER FREQUENCY:MONTHLY;?
     Route: 058
  8. BUPROPION. [Concomitant]
     Active Substance: BUPROPION
  9. PAIN PATCHES, [Concomitant]
  10. ACETAMINOPHEN EXCEDRIN-FORULATION [Concomitant]
  11. PROPANOLOL [Concomitant]
     Active Substance: PROPRANOLOL HYDROCHLORIDE
  12. MULTIVITAMIN [Concomitant]
     Active Substance: VITAMINS
  13. MELATONIN [Concomitant]
     Active Substance: MELATONIN
  14. ZOFRAN [Concomitant]
     Active Substance: ONDANSETRON HYDROCHLORIDE

REACTIONS (6)
  - Diarrhoea [None]
  - Flatulence [None]
  - Urticaria [None]
  - Viral infection [None]
  - Abdominal distension [None]
  - Gastrointestinal sounds abnormal [None]
